FAERS Safety Report 6890507-X (Version None)
Quarter: 2010Q3

REPORT INFORMATION
  Report Type: 
  Country: None (occurrence: None)
  Receive Date: 20100731
  Receipt Date: 20081111
  Transmission Date: 20110219
  Serious: No
  Sender: FDA-Public Use
  Company Number: US-PFIZER INC-2008095664

PATIENT
  Sex: Female
  Weight: 56.818 kg

DRUGS (3)
  1. LIPITOR [Suspect]
     Indication: BLOOD CHOLESTEROL INCREASED
     Route: 048
     Dates: start: 20081021, end: 20081109
  2. LEXAPRO [Concomitant]
  3. LEVOXYL [Concomitant]

REACTIONS (1)
  - ALOPECIA [None]
